FAERS Safety Report 20463236 (Version 1)
Quarter: 2022Q1

REPORT INFORMATION
  Report Type: Spontaneous
  Country: None (occurrence: US)
  Receive Date: 20220211
  Receipt Date: 20220211
  Transmission Date: 20220423
  Serious: Yes (Hospitalization, Other)
  Sender: FDA-Public Use
  Company Number: US-Sunstar Americas Inc.-2125820

PATIENT
  Sex: Female
  Weight: 92.5 kg

DRUGS (106)
  1. PAROEX [Suspect]
     Active Substance: CHLORHEXIDINE GLUCONATE
     Indication: Pharyngitis
     Route: 002
     Dates: start: 202009, end: 20201028
  2. EXTRA STRENGHTH ACETAMINOPHEN [Concomitant]
     Active Substance: ACETAMINOPHEN
     Route: 002
     Dates: start: 20201010, end: 20201014
  3. ACETYLCYSTEINE [Concomitant]
     Active Substance: ACETYLCYSTEINE
     Route: 042
     Dates: start: 20201009, end: 20201009
  4. ACETAZOLAMIDE [Concomitant]
     Active Substance: ACETAZOLAMIDE
     Route: 042
     Dates: start: 20200929, end: 20201024
  5. ALBUMINAR-25 [Concomitant]
     Active Substance: ALBUMIN HUMAN
     Route: 042
     Dates: start: 20200923, end: 20201023
  6. ALBUMINAR-5 [Concomitant]
     Active Substance: ALBUMIN HUMAN
     Route: 042
     Dates: start: 20200920, end: 20201023
  7. ALBUTEROL SULFATE [Concomitant]
     Active Substance: ALBUTEROL SULFATE
     Route: 055
     Dates: start: 20201009, end: 20201009
  8. AMPICILLIN SODIUM [Concomitant]
     Active Substance: AMPICILLIN SODIUM
     Route: 042
     Dates: start: 20201013, end: 20201024
  9. ARTIFICIAL TEARS [Concomitant]
     Active Substance: GLYCERIN\HYPROMELLOSES\POLYETHYLENE GLYCOL 400
     Route: 047
     Dates: start: 20200911, end: 20201023
  10. ASPIRIN [Concomitant]
     Active Substance: ASPIRIN
     Route: 048
     Dates: start: 20200921, end: 20201024
  11. CALCIUM CHLORIDE [Concomitant]
     Active Substance: CALCIUM CHLORIDE
     Route: 042
     Dates: start: 20200920, end: 20201023
  12. CEFAZOLIN SODIUM [Concomitant]
     Active Substance: CEFAZOLIN SODIUM
     Route: 042
     Dates: start: 20200921, end: 20200924
  13. CEFTRIAXONE [Concomitant]
     Active Substance: CEFTRIAXONE
     Route: 042
     Dates: start: 20201013, end: 20201024
  14. CHLOROTHIAZIDE [Concomitant]
     Active Substance: CHLOROTHIAZIDE
     Route: 042
     Dates: start: 20201004, end: 20201008
  15. CISATRACURIUM [Concomitant]
     Active Substance: CISATRACURIUM
     Route: 042
     Dates: start: 20200911, end: 20201022
  16. CLONAZEPAM [Concomitant]
     Active Substance: CLONAZEPAM
     Route: 002
     Dates: start: 20200928, end: 20201024
  17. COLLAGENASE SANTYL [Concomitant]
     Active Substance: COLLAGENASE CLOSTRIDIUM HISTOLYTICUM
     Route: 061
     Dates: start: 20201024, end: 20201024
  18. DEXTROSE [Concomitant]
     Active Substance: DEXTROSE
     Route: 042
     Dates: start: 20200920, end: 20201021
  19. DEXAMETHASONE [Concomitant]
     Active Substance: DEXAMETHASONE
     Route: 042
     Dates: start: 20200921, end: 20200925
  20. DEXAMETHASONE [Concomitant]
     Active Substance: DEXAMETHASONE
     Route: 042
     Dates: start: 20200912, end: 20200920
  21. DEXTROSE [Concomitant]
     Active Substance: DEXTROSE
     Route: 042
     Dates: start: 20200910, end: 20201023
  22. DOCUSATE SODIUM [Concomitant]
     Active Substance: DOCUSATE SODIUM
     Route: 048
     Dates: start: 20200911, end: 20201024
  23. EPOPROSTENOL [Concomitant]
     Active Substance: EPOPROSTENOL
     Route: 042
     Dates: start: 20200917, end: 20201014
  24. ETOMIDATE [Interacting]
     Active Substance: ETOMIDATE
     Route: 042
     Dates: start: 20200911, end: 20200911
  25. FENTANYL CITRATE [Concomitant]
     Active Substance: FENTANYL CITRATE
     Route: 042
     Dates: start: 20200922, end: 20200922
  26. VANCOMYCIN HYDROCHLORIDE [Concomitant]
     Active Substance: VANCOMYCIN HYDROCHLORIDE
     Route: 042
     Dates: start: 20200920, end: 20200920
  27. EPINEPHRINE HYDROCHLORIDE [Concomitant]
     Active Substance: EPINEPHRINE HYDROCHLORIDE
     Route: 042
     Dates: start: 20200920, end: 20200920
  28. VANCOMYCIN HYDROCHLORIDE [Concomitant]
     Active Substance: VANCOMYCIN HYDROCHLORIDE
     Route: 042
     Dates: start: 20200912, end: 20201012
  29. PROPOFOL [Concomitant]
     Active Substance: PROPOFOL
     Route: 042
     Dates: start: 20200911, end: 20201024
  30. KETAMINE HYDROCHLORIDE [Concomitant]
     Active Substance: KETAMINE HYDROCHLORIDE
     Route: 042
     Dates: start: 20200911, end: 20200920
  31. ENALAPRILAT [Concomitant]
     Active Substance: ENALAPRILAT
     Route: 042
     Dates: start: 20200918, end: 20200929
  32. SPIRONOLACTONE [Concomitant]
     Active Substance: SPIRONOLACTONE
     Route: 002
     Dates: start: 20201011, end: 20201024
  33. OCTREOTIDE [Concomitant]
     Active Substance: OCTREOTIDE
     Route: 048
     Dates: start: 20201019, end: 20201023
  34. PHENYLEPHRINE [Concomitant]
     Active Substance: PHENYLEPHRINE HYDROCHLORIDE
     Route: 042
     Dates: start: 20201021, end: 20201021
  35. NOREPINEPHRINE BITARTRATE [Concomitant]
     Active Substance: NOREPINEPHRINE BITARTRATE
     Route: 042
     Dates: start: 20200922, end: 20200922
  36. QUETIAPINE [Concomitant]
     Active Substance: QUETIAPINE
     Route: 002
     Dates: start: 20201001, end: 20201024
  37. QUETIAPINE [Concomitant]
     Active Substance: QUETIAPINE
     Route: 002
     Dates: start: 20200924, end: 20200930
  38. VANCOMYCIN HYDROCHLORIDE [Concomitant]
     Active Substance: VANCOMYCIN HYDROCHLORIDE
     Route: 042
     Dates: start: 20200911, end: 20200919
  39. ROCURONIUM BROMIDE [Concomitant]
     Active Substance: ROCURONIUM BROMIDE
     Route: 042
     Dates: start: 20200922, end: 20201024
  40. ROCURONIUM BROMIDE [Concomitant]
     Active Substance: ROCURONIUM BROMIDE
     Route: 042
     Dates: start: 20200921, end: 20200930
  41. SENNA LIQUID [Concomitant]
     Active Substance: SENNOSIDES
     Route: 048
     Dates: start: 20200911, end: 20201024
  42. BSS [Concomitant]
     Active Substance: CALCIUM CHLORIDE\MAGNESIUM CHLORIDE\POTASSIUM CHLORIDE\SODIUM ACETATE\SODIUM CHLORIDE\SODIUM CITRATE
     Route: 048
     Dates: start: 20200925, end: 20200930
  43. ACTEMRA [Concomitant]
     Active Substance: TOCILIZUMAB
     Route: 042
     Dates: start: 20200914, end: 20200914
  44. SPIRONOLACTONE [Concomitant]
     Active Substance: SPIRONOLACTONE
     Route: 002
     Dates: start: 20201009, end: 20201011
  45. SUCCINYLCHOLINE CHLORIDE [Concomitant]
     Active Substance: SUCCINYLCHOLINE CHLORIDE
     Route: 042
     Dates: start: 20200911, end: 20200911
  46. MAGNESIUM SULFATE IN WATER [Concomitant]
     Active Substance: MAGNESIUM SULFATE HEPTAHYDRATE
     Route: 042
     Dates: start: 20200920, end: 20201024
  47. MIDAZOLAM [Concomitant]
     Active Substance: MIDAZOLAM
     Route: 042
     Dates: start: 20200922, end: 20200922
  48. MIDAZOLAM [Concomitant]
     Active Substance: MIDAZOLAM
     Route: 042
     Dates: start: 20200911, end: 20201023
  49. DEXTROSE [Concomitant]
     Active Substance: DEXTROSE
     Dates: start: 20201011, end: 20201013
  50. MAGNESIUM OXIDE [Concomitant]
     Active Substance: MAGNESIUM OXIDE
     Route: 002
     Dates: start: 20200918, end: 20200918
  51. METOCLOPRAMIDE [Concomitant]
     Active Substance: METOCLOPRAMIDE
     Route: 042
     Dates: start: 20200916, end: 20200922
  52. METRONIDAZOLE [Concomitant]
     Active Substance: METRONIDAZOLE
     Route: 042
     Dates: start: 20201020, end: 20201020
  53. METOPROLOL [Concomitant]
     Active Substance: METOPROLOL
     Dates: start: 20201021, end: 20201021
  54. METOLAZONE [Concomitant]
     Active Substance: METOLAZONE
     Route: 002
     Dates: start: 20201008, end: 20201024
  55. MIDODRINE HYDROCHLORIDE [Concomitant]
     Active Substance: MIDODRINE HYDROCHLORIDE
     Route: 002
     Dates: start: 20201006, end: 20201024
  56. MIDODRINE HYDROCHLORIDE [Concomitant]
     Active Substance: MIDODRINE HYDROCHLORIDE
     Route: 002
     Dates: start: 20201019, end: 20201023
  57. MIRALAX [Concomitant]
     Active Substance: POLYETHYLENE GLYCOL 3350
     Route: 048
     Dates: start: 20201010, end: 20201024
  58. PHENYLEPHRINE [Concomitant]
     Active Substance: PHENYLEPHRINE HYDROCHLORIDE
     Route: 042
     Dates: start: 20200920, end: 20200920
  59. PANTOPRAZOLE SODIUM [Concomitant]
     Active Substance: PANTOPRAZOLE SODIUM
     Route: 042
     Dates: start: 20200911, end: 20201024
  60. MUPIROCIN [Concomitant]
     Active Substance: MUPIROCIN
     Route: 045
     Dates: start: 20200921, end: 20200926
  61. EQUALINE OXYMETAZOLINE HCL NASAL DECONGESTANT NO DRIP [Concomitant]
     Active Substance: OXYMETAZOLINE HYDROCHLORIDE
     Dates: start: 20201016, end: 20201016
  62. OXYCODONE HYDROCHLORIDE [Concomitant]
     Active Substance: OXYCODONE HYDROCHLORIDE
     Route: 048
     Dates: start: 20201006, end: 20201007
  63. HYDRALAZINE [Concomitant]
     Active Substance: HYDRALAZINE HYDROCHLORIDE
     Route: 042
     Dates: start: 20200918, end: 20201018
  64. HYDROMORPHONE HYDROCHLORIDE [Concomitant]
     Active Substance: HYDROMORPHONE HYDROCHLORIDE
     Route: 042
     Dates: start: 20201001, end: 20201012
  65. HYDROMORPHONE HYDROCHLORIDE [Concomitant]
     Active Substance: HYDROMORPHONE HYDROCHLORIDE
     Route: 042
     Dates: start: 20201003, end: 20201003
  66. GLYCOPYRROLATE [Concomitant]
     Active Substance: GLYCOPYRROLATE
     Route: 042
     Dates: start: 20200929, end: 20200929
  67. MUCINEX DM [Concomitant]
     Active Substance: DEXTROMETHORPHAN HYDROBROMIDE\GUAIFENESIN
     Route: 048
     Dates: start: 20200927, end: 20201013
  68. LANTUS [Concomitant]
     Active Substance: INSULIN GLARGINE
     Route: 042
     Dates: start: 20200924, end: 20201024
  69. LABETALOL [Concomitant]
     Active Substance: LABETALOL\LABETALOL HYDROCHLORIDE
     Route: 042
     Dates: start: 20200920, end: 20201004
  70. LACTATED RINGERS SOLUTION [Concomitant]
     Active Substance: CALCIUM CHLORIDE\POTASSIUM CHLORIDE\SODIUM CHLORIDE\SODIUM LACTATE
     Route: 042
     Dates: start: 20200911, end: 20200911
  71. LACTULOSE [Concomitant]
     Active Substance: LACTULOSE
     Route: 048
     Dates: start: 20201008, end: 20201009
  72. LACTULOSE [Concomitant]
     Active Substance: LACTULOSE
     Route: 054
     Dates: start: 20200924, end: 20200924
  73. LOSARTAN [Concomitant]
     Active Substance: LOSARTAN
     Route: 002
     Dates: start: 20201017, end: 20201017
  74. XYLOCAINE(R) -MPF (LIDOCAINE HCI AND EPINEPHRINE) [Concomitant]
     Active Substance: EPINEPHRINE BITARTRATE\LIDOCAINE HYDROCHLORIDE ANHYDROUS
     Route: 042
     Dates: start: 20201010, end: 20201010
  75. LIDOCAINE [Concomitant]
     Active Substance: LIDOCAINE
     Route: 042
     Dates: start: 20200928, end: 20201006
  76. LIDOCAINE VISCOUS [Concomitant]
     Active Substance: LIDOCAINE HYDROCHLORIDE
     Route: 042
     Dates: start: 20201017, end: 20201017
  77. SODIUM CHLORIDE [Concomitant]
     Active Substance: SODIUM CHLORIDE
     Route: 042
     Dates: start: 20200913, end: 20200913
  78. SODIUM CHLORIDE [Concomitant]
     Active Substance: SODIUM CHLORIDE
     Route: 042
     Dates: start: 20200919, end: 20200919
  79. SODIUM CHLORIDE [Concomitant]
     Active Substance: SODIUM CHLORIDE
     Route: 042
     Dates: start: 20200924, end: 20200924
  80. DUONEB [Concomitant]
     Active Substance: ALBUTEROL SULFATE\IPRATROPIUM BROMIDE
     Route: 055
     Dates: start: 20200915, end: 20200916
  81. CEFEPIME HYDROCHLORIDE [Concomitant]
     Active Substance: CEFEPIME HYDROCHLORIDE
     Route: 042
     Dates: start: 20201011, end: 20201011
  82. NIMBEX [Concomitant]
     Active Substance: CISATRACURIUM BESYLATE
     Route: 042
     Dates: start: 20200911, end: 20200923
  83. CLINDAMYCIN [Concomitant]
     Active Substance: CLINDAMYCIN
     Route: 042
     Dates: start: 20201018, end: 20201019
  84. DEXTROSE [Concomitant]
     Active Substance: DEXTROSE
     Route: 042
     Dates: start: 20201011, end: 20201013
  85. PRECEDEX [Concomitant]
     Active Substance: DEXMEDETOMIDINE HYDROCHLORIDE
     Route: 042
     Dates: start: 20200926, end: 20200928
  86. FENTANYL CITRATE [Concomitant]
     Active Substance: FENTANYL CITRATE
     Route: 042
     Dates: start: 20200911, end: 20201003
  87. DOBUTAMINE HYDROCHLORIDE IN DEXTROSE [Concomitant]
     Active Substance: DEXTROSE MONOHYDRATE\DOBUTAMINE HYDROCHLORIDE
     Route: 042
     Dates: start: 20201009, end: 20201009
  88. FUROSEMIDE [Concomitant]
     Active Substance: FUROSEMIDE
     Route: 042
     Dates: start: 20200914, end: 20201024
  89. HEPARIN SODIUM AND SODIUM CHLORIDE [Concomitant]
     Active Substance: HEPARIN SODIUM
     Route: 042
     Dates: start: 20200920, end: 20200928
  90. HYDROMORPHONE HYDROCHLORIDE [Concomitant]
     Active Substance: HYDROMORPHONE HYDROCHLORIDE
     Route: 042
     Dates: start: 20201003, end: 20201024
  91. MAGNESIUM SULFATE IN WATER [Concomitant]
     Active Substance: MAGNESIUM SULFATE HEPTAHYDRATE
     Route: 042
     Dates: start: 20200918, end: 20201024
  92. MAGNESIUM SULFATE IN DEXTROSE [Concomitant]
     Active Substance: MAGNESIUM SULFATE
     Route: 042
     Dates: start: 20201016, end: 20201026
  93. PROPOFOL [Concomitant]
     Active Substance: PROPOFOL
     Route: 042
     Dates: start: 20200922, end: 20200922
  94. QUETIAPINE [Concomitant]
     Active Substance: QUETIAPINE
     Route: 002
     Dates: start: 20201001, end: 20201007
  95. VASOPRESSIN [Concomitant]
     Active Substance: VASOPRESSIN
     Route: 042
     Dates: start: 20201013, end: 20201013
  96. MIDAZOLAM [Concomitant]
     Active Substance: MIDAZOLAM
     Route: 042
     Dates: start: 20200919, end: 20201024
  97. XYLOCAINE(R) -MPF (LIDOCAINE HCI AND EPINEPHRINE) [Concomitant]
     Active Substance: EPINEPHRINE BITARTRATE\LIDOCAINE HYDROCHLORIDE ANHYDROUS
     Route: 042
     Dates: start: 20200928, end: 20201007
  98. DOPAMINE HYDROCHLORIDE AND DEXTROSE [Concomitant]
     Active Substance: DOPAMINE HYDROCHLORIDE
     Route: 042
     Dates: start: 20201009, end: 20201009
  99. NOREPINEPHRINE BITARTRATE [Concomitant]
     Active Substance: NOREPINEPHRINE BITARTRATE
     Route: 042
     Dates: start: 20200922, end: 20201015
  100. K PHOS NEUTRAL [Concomitant]
     Active Substance: POTASSIUM PHOSPHATE, MONOBASIC\SODIUM PHOSPHATE, DIBASIC, ANHYDROUS\SODIUM PHOSPHATE, MONOBASIC, MON
     Route: 002
     Dates: start: 20200918, end: 20200921
  101. CLEAR TIME (OXYMETAZOLINE HYDROCHLORIDE) [Concomitant]
     Active Substance: OXYMETAZOLINE HYDROCHLORIDE
     Route: 047
     Dates: start: 20201016, end: 20201016
  102. POTASSIUM CHLORIDE [Concomitant]
     Active Substance: POTASSIUM CHLORIDE
     Route: 048
     Dates: start: 20200921, end: 20201024
  103. NICARDIPINE HYDROCHLORIDE [Concomitant]
     Active Substance: NICARDIPINE HYDROCHLORIDE
     Route: 042
     Dates: start: 20200921, end: 20200921
  104. NITROGLYCERIN IN DEXTROSE [Concomitant]
     Active Substance: NITROGLYCERIN
     Route: 042
     Dates: start: 20200927, end: 20201003
  105. HUMULIN R [Concomitant]
     Active Substance: INSULIN HUMAN
     Route: 042
     Dates: start: 20200920, end: 20200920
  106. KETAMINE HYDROCHLORIDE [Concomitant]
     Active Substance: KETAMINE HYDROCHLORIDE
     Route: 042
     Dates: start: 20200928, end: 20200928

REACTIONS (4)
  - Dyspnoea [Unknown]
  - Cough [Unknown]
  - Diarrhoea [Unknown]
  - Burkholderia test positive [Unknown]

NARRATIVE: CASE EVENT DATE: 20200901
